FAERS Safety Report 8588273 (Version 5)
Quarter: 2012Q4

REPORT INFORMATION
  Report Type: 
  Country: FR (occurrence: FR)
  Receive Date: 20120531
  Receipt Date: 20121001
  Transmission Date: 20130627
  Serious: Yes (Hospitalization)
  Sender: FDA-Public Use
  Company Number: FR-ASTRAZENECA-2012SE33691

PATIENT
  Age: 394 Month
  Sex: Female

DRUGS (5)
  1. XEROQUEL [Suspect]
     Indication: SCHIZOPHRENIA
     Route: 048
     Dates: start: 20111122, end: 20120515
  2. HALDOL [Concomitant]
     Indication: SCHIZOPHRENIA
     Route: 048
  3. XANAX [Concomitant]
     Route: 048
  4. LEPTICUR [Concomitant]
  5. FORLAX [Concomitant]
     Dates: end: 201205

REACTIONS (3)
  - Congestive cardiomyopathy [Recovered/Resolved]
  - Cardiac failure [Recovered/Resolved]
  - Rash pruritic [Unknown]
